FAERS Safety Report 17695011 (Version 2)
Quarter: 2020Q2

REPORT INFORMATION
  Report Type: Spontaneous
  Country: US (occurrence: US)
  Receive Date: 20200422
  Receipt Date: 20200505
  Transmission Date: 20200714
  Serious: No
  Sender: FDA-Public Use
  Company Number: US-VIFOR (INTERNATIONAL) INC.-VIT-2020-05148

PATIENT
  Age: 75 Year
  Sex: Male

DRUGS (3)
  1. VELTASSA [Suspect]
     Active Substance: PATIROMER
     Indication: HYPERKALAEMIA
     Route: 048
     Dates: start: 20200408
  2. CLONIDINE. [Concomitant]
     Active Substance: CLONIDINE
  3. VELTASSA [Suspect]
     Active Substance: PATIROMER

REACTIONS (1)
  - Constipation [Not Recovered/Not Resolved]
